FAERS Safety Report 10711509 (Version 3)
Quarter: 2015Q2

REPORT INFORMATION
  Report Type: Report from Study
  Country: AU (occurrence: AU)
  Receive Date: 20150114
  Receipt Date: 20150512
  Transmission Date: 20150821
  Serious: Yes (Death, Life-Threatening, Hospitalization)
  Sender: FDA-Public Use
  Company Number: AU-ABBVIE-15P-008-1329576-00

PATIENT
  Age: 66 Year
  Sex: Male

DRUGS (3)
  1. DUODOPA [Suspect]
     Active Substance: CARBIDOPA\LEVODOPA
     Dosage: INCREASED FROM ONE CASSETTE TO TWO CASSETTES
     Route: 050
     Dates: start: 20141216, end: 20150106
  2. DUODOPA [Suspect]
     Active Substance: CARBIDOPA\LEVODOPA
     Indication: PRODUCT USED FOR UNKNOWN INDICATION
     Dosage: MD: 15 ML, CONTINUOUS RATE 5.5 ML
     Route: 050
     Dates: start: 20141209, end: 20141216
  3. PRAMIPEXOLE [Concomitant]
     Active Substance: PRAMIPEXOLE
     Indication: PRODUCT USED FOR UNKNOWN INDICATION

REACTIONS (17)
  - Respiratory failure [Fatal]
  - Rales [Unknown]
  - Pneumonia aspiration [Fatal]
  - Dyspnoea [Unknown]
  - Malaise [Unknown]
  - Increased bronchial secretion [Unknown]
  - Oxygen saturation decreased [Unknown]
  - Urinary incontinence [Unknown]
  - Cough [Unknown]
  - Diarrhoea [Unknown]
  - Productive cough [Unknown]
  - Vomiting [Unknown]
  - Dehydration [Unknown]
  - Sputum discoloured [Unknown]
  - Fatigue [Unknown]
  - Nausea [Unknown]
  - Blood potassium decreased [Unknown]

NARRATIVE: CASE EVENT DATE: 20150101
